FAERS Safety Report 4564227-0 (Version None)
Quarter: 2005Q1

REPORT INFORMATION
  Report Type: 
  Country: None (occurrence: None)
  Receive Date: 20050128
  Receipt Date: 20050119
  Transmission Date: 20050727
  Serious: Yes (Hospitalization)
  Sender: FDA-Public Use
  Company Number: DE-ROCHE-393059

PATIENT
  Age: 50 Year
  Sex: Male

DRUGS (2)
  1. RIBAVIRIN [Suspect]
     Indication: HEPATITIS C
     Route: 065
     Dates: start: 20040726
  2. PEG-INTERFERON ALFA 2A (RO 25-8310) [Concomitant]
     Indication: HEPATITIS C
     Route: 058
     Dates: start: 20040726

REACTIONS (2)
  - DRUG ERUPTION [None]
  - EXANTHEM [None]
